FAERS Safety Report 15424283 (Version 1)
Quarter: 2018Q3

REPORT INFORMATION
  Report Type: Other
  Country: FR (occurrence: FR)
  Receive Date: 20180925
  Receipt Date: 20180925
  Transmission Date: 20181010
  Serious: Yes (Other)
  Sender: FDA-Public Use
  Company Number: FR-ASPEN-GLO2018FR009429

PATIENT
  Age: 38 Year
  Sex: Male

DRUGS (25)
  1. THIOTEPA. [Suspect]
     Active Substance: THIOTEPA
     Indication: BONE MARROW CONDITIONING REGIMEN
     Dosage: CONDITIONING THERAPY FOR SECOND ASCT
     Route: 065
  2. CYCLOPHOSPHAMIDE. [Suspect]
     Active Substance: CYCLOPHOSPHAMIDE
     Dosage: 2 CYCLES OF COPADEM INDUCTION
     Route: 065
  3. METHOTREXATE. [Suspect]
     Active Substance: METHOTREXATE
     Dosage: 3 CYCLES OF DIAM AT 1ST RELAPSE
     Route: 065
  4. CYTARABINE. [Suspect]
     Active Substance: CYTARABINE
     Indication: CENTRAL NERVOUS SYSTEM LYMPHOMA
     Dosage: 2 CYCLES OF COPADEM INDUCTION
     Route: 037
  5. CYTARABINE. [Suspect]
     Active Substance: CYTARABINE
     Dosage: 3 CYCLES OF DIAM AT 1ST RELAPSE
     Route: 037
  6. RITUXIMAB. [Suspect]
     Active Substance: RITUXIMAB
     Indication: CENTRAL NERVOUS SYSTEM LYMPHOMA
     Dosage: FROM 4 COURSES OF R?DIAM
     Route: 042
  7. CYCLOPHOSPHAMIDE. [Suspect]
     Active Substance: CYCLOPHOSPHAMIDE
     Indication: BONE MARROW CONDITIONING REGIMEN
     Dosage: DEBULKING CHEMOTHERAPY
     Route: 065
  8. CYCLOPHOSPHAMIDE. [Suspect]
     Active Substance: CYCLOPHOSPHAMIDE
     Dosage: CONDITIONING THERAPY FOR SECOND ASCT
     Route: 065
  9. METHOTREXATE. [Suspect]
     Active Substance: METHOTREXATE
     Dosage: 2 CYCLES OF CYM CONSOLIDATION
     Route: 065
  10. METHOTREXATE. [Suspect]
     Active Substance: METHOTREXATE
     Dosage: 3 CYCLES OF DIAM AT 1ST RELAPSE
     Route: 037
  11. CYTARABINE. [Suspect]
     Active Substance: CYTARABINE
     Indication: PROPHYLAXIS AGAINST TRANSPLANT REJECTION
     Dosage: 2 CYCLES OF CYM CONSOLIDATION
     Route: 037
  12. CYTARABINE. [Suspect]
     Active Substance: CYTARABINE
     Dosage: CONDITIONED BY BEAM?ARAC HIGH DOSE BEFORE ASCT, 2000 MG/M2 INFUSED OVER 1 HOUR, OVERALL 3900 MG
     Route: 042
  13. FILGRASTIM [Concomitant]
     Active Substance: FILGRASTIM
     Indication: PRODUCT USED FOR UNKNOWN INDICATION
     Route: 065
  14. IFOSFAMIDE. [Suspect]
     Active Substance: IFOSFAMIDE
     Dosage: FROM 4 COURSES OF R?DIAM AT 2ND RELAPSE
     Route: 065
  15. METHOTREXATE. [Suspect]
     Active Substance: METHOTREXATE
     Indication: CENTRAL NERVOUS SYSTEM LYMPHOMA
     Dosage: FROM 4 COURSES OF R?DIAM AT 2ND RELAPSE
     Route: 065
  16. DEXAMETHASONE. [Suspect]
     Active Substance: DEXAMETHASONE
     Dosage: 3 CYCLES OF DIAM AT 1ST RELAPSE
     Route: 065
  17. DEXAMETHASONE. [Suspect]
     Active Substance: DEXAMETHASONE
     Dosage: CONDITIONED BY BEAM?ARAC HIGH DOSE BEFORE ASCT
     Route: 065
  18. DEXAMETHASONE. [Suspect]
     Active Substance: DEXAMETHASONE
     Indication: PROPHYLAXIS AGAINST TRANSPLANT REJECTION
     Dosage: FROM 4 COURSES OF R?DIAM AT 2ND RELAPSE
     Route: 065
  19. METHOTREXATE. [Suspect]
     Active Substance: METHOTREXATE
     Dosage: FROM 4 COURSES OF R?DIAM AT 2ND RELAPSE
     Route: 065
  20. LENOGRASTIM [Concomitant]
     Active Substance: LENOGRASTIM
     Indication: PRODUCT USED FOR UNKNOWN INDICATION
     Dosage: 34 MUI/D, STARTING AT DAY 12 AFTER THE 2ND CYCLE OF R?DIAM
     Route: 065
  21. CYTARABINE. [Suspect]
     Active Substance: CYTARABINE
     Dosage: FROM 4 COURSES OF R?DIAM AT 2ND RELAPSE
     Route: 065
  22. CYTARABINE. [Suspect]
     Active Substance: CYTARABINE
     Dosage: 2 CYCLES OF CYM CONSOLIDATION
     Route: 037
  23. IFOSFAMIDE. [Suspect]
     Active Substance: IFOSFAMIDE
     Indication: CENTRAL NERVOUS SYSTEM LYMPHOMA
     Dosage: 3 CYCLES OF DIAM AT 1ST RELAPSE
     Route: 065
  24. BUSULFAN. [Suspect]
     Active Substance: BUSULFAN
     Indication: BONE MARROW CONDITIONING REGIMEN
     Dosage: 0.8 MG/KG X 4, CONDITIONING THERAPY FOR SECOND ASCT
     Route: 042
  25. METHOTREXATE. [Suspect]
     Active Substance: METHOTREXATE
     Dosage: 2 CYCLES OF COPADEM INDUCTION
     Route: 065

REACTIONS (3)
  - Mucosal inflammation [Recovering/Resolving]
  - Enterobacter infection [Recovering/Resolving]
  - Pseudomonal sepsis [Recovering/Resolving]
